FAERS Safety Report 26209747 (Version 1)
Quarter: 2025Q4

REPORT INFORMATION
  Report Type: Spontaneous
  Country: EU (occurrence: EU)
  Receive Date: 20251229
  Receipt Date: 20251229
  Transmission Date: 20260118
  Serious: Yes (Death, Life-Threatening, Other)
  Sender: PFIZER
  Company Number: None

PATIENT
  Age: 81 Year
  Sex: Female

DRUGS (8)
  1. METHOTREXATE SODIUM [Suspect]
     Active Substance: METHOTREXATE SODIUM
     Indication: Rheumatoid arthritis
     Dosage: 10 MG, WEEKLY
     Route: 048
     Dates: end: 20250714
  2. ETANERCEPT [Concomitant]
     Active Substance: ETANERCEPT
     Dosage: 50 MG
  3. FUROSEMIDE [Concomitant]
     Active Substance: FUROSEMIDE
     Dosage: UNK
  4. PANTOPRAZOLE [Concomitant]
     Active Substance: PANTOPRAZOLE
     Dosage: UNK
  5. PREDNISONE [Concomitant]
     Active Substance: PREDNISONE
     Dosage: UNK
  6. FLUOXETINE HYDROCHLORIDE [Concomitant]
     Active Substance: FLUOXETINE HYDROCHLORIDE
     Dosage: UNK
  7. PRAMIPEXOLE DIHYDROCHLORIDE [Concomitant]
     Active Substance: PRAMIPEXOLE DIHYDROCHLORIDE
     Dosage: UNK
  8. DESLORATADINE [Concomitant]
     Active Substance: DESLORATADINE
     Dosage: UNK

REACTIONS (4)
  - Pancytopenia [Fatal]
  - Epidermal necrosis [Not Recovered/Not Resolved]
  - Respiratory failure [Fatal]
  - Circulatory collapse [Fatal]

NARRATIVE: CASE EVENT DATE: 20250712
